FAERS Safety Report 7910743-0 (Version None)
Quarter: 2011Q4

REPORT INFORMATION
  Report Type: 
  Country: None (occurrence: None)
  Receive Date: 20111112
  Receipt Date: 20111102
  Transmission Date: 20120403
  Serious: Yes (Hospitalization, Other)
  Sender: FDA-Public Use
  Company Number: US-ASTRAZENECA-2010SE14026

PATIENT
  Age: 54 Year
  Sex: Male
  Weight: 86.2 kg

DRUGS (28)
  1. SYMBICORT [Suspect]
     Dosage: 160/4.5 MCG, TWO PUFFS, DAILY
     Route: 055
  2. ASPIRIN [Concomitant]
     Route: 048
  3. AMBIEN [Concomitant]
  4. NEXIUM [Suspect]
     Route: 048
  5. DURAGESIC-100 [Concomitant]
     Dosage: 75 MCG/HR PATCH 72 HR, 1 PATCH EVERY 3 DAYS
  6. XANAX [Concomitant]
     Route: 048
  7. NASONEX [Concomitant]
     Indication: HYPERSENSITIVITY
     Dosage: 2 SPRAYS TWICE DAILY
  8. CELEXA [Concomitant]
     Route: 048
  9. NITROGLYCERIN [Concomitant]
     Route: 060
  10. TRAZODONE HCL [Concomitant]
     Route: 048
  11. SYMBICORT [Suspect]
     Dosage: 160/4.5 MCG, ONE PUFFS, DAILY
     Route: 055
  12. FISH OIL [Concomitant]
     Route: 048
  13. FLONASE [Concomitant]
     Dosage: 4 SPRAYS DAILY
  14. METFORMIN HCL [Concomitant]
     Route: 048
  15. OMEPRAZOLE [Concomitant]
     Route: 048
  16. MULTIPLE VITAMIN [Concomitant]
     Route: 048
  17. QVAR 40 [Concomitant]
     Dosage: 40 MCG, 2 PUFFS TWICE DAILY
  18. METFORMIN HCL [Concomitant]
     Route: 048
  19. OXYCODONE HCL [Concomitant]
     Route: 048
  20. LYRICA [Concomitant]
     Indication: NEUROPATHY PERIPHERAL
     Route: 048
  21. COLACE [Concomitant]
  22. LIDODERM [Concomitant]
     Dosage: 5 % (700 MG/PATCH) ADHESIVE PATCH, MEDICATED, ON 12 HOURS OFF 12 HOUR
  23. ENALAPRIL MALEATE AND HYDROCHLOROTHIAZIDE [Concomitant]
     Dosage: 5-12.5 MG DAILY
     Route: 048
  24. XANAX [Concomitant]
     Route: 048
  25. MUCINEX [Concomitant]
  26. ATROVENT [Concomitant]
     Dosage: 1 PUFF EVERY 8 HOURS PRN
  27. PAXIL [Concomitant]
     Route: 048
  28. MORPHINE [Concomitant]
     Route: 048

REACTIONS (10)
  - BRADYCARDIA [None]
  - MYOCARDIAL INFARCTION [None]
  - BACTERIAL INFECTION [None]
  - ULCER [None]
  - OESOPHAGEAL CANDIDIASIS [None]
  - PYREXIA [None]
  - INCORRECT DOSE ADMINISTERED [None]
  - LEUKOCYTOSIS [None]
  - SYNCOPE [None]
  - VOMITING [None]
